FAERS Safety Report 5078170-4 (Version None)
Quarter: 2006Q3

REPORT INFORMATION
  Report Type: 
  Country: None (occurrence: None)
  Receive Date: 20060811
  Receipt Date: 20060303
  Transmission Date: 20061208
  Serious: Yes (Other)
  Sender: FDA-Public Use
  Company Number: PHHO2006FR03888

PATIENT
  Age: 13 Year
  Sex: Male
  Weight: 27.1 kg

DRUGS (2)
  1. EXJADE [Suspect]
     Indication: HAEMOSIDEROSIS
     Dosage: 500 MG, QD
     Route: 048
     Dates: start: 20060203
  2. EXJADE [Suspect]
     Dosage: 875 MG, QD
     Route: 048
     Dates: start: 20040907, end: 20060202

REACTIONS (6)
  - ABDOMINAL PAIN [None]
  - GLYCOSURIA [None]
  - HYPOKALAEMIA [None]
  - HYPOPHOSPHATAEMIA [None]
  - RENAL FAILURE [None]
  - RENAL TUBULAR DISORDER [None]
